FAERS Safety Report 7748374-8 (Version None)
Quarter: 2011Q3

REPORT INFORMATION
  Report Type: 
  Country: None (occurrence: None)
  Receive Date: 20110913
  Receipt Date: 20110909
  Transmission Date: 20111222
  Serious: Yes (Other)
  Sender: FDA-Public Use
  Company Number: GB-MERCK-1109GBR00050

PATIENT
  Age: 76 Year
  Sex: Female
  Weight: 67 kg

DRUGS (12)
  1. BECLOMETHASONE DIPROPIONATE [Concomitant]
     Route: 065
     Dates: start: 20110718
  2. CALCIUM CARBONATE AND CHOLECALCIFEROL [Concomitant]
     Route: 065
     Dates: start: 20110519
  3. LOFEPRAMINE HYDROCHLORIDE [Concomitant]
     Route: 065
     Dates: start: 20110418
  4. RAMIPRIL [Concomitant]
     Route: 065
     Dates: start: 20110718
  5. DILTIAZEM HYDROCHLORIDE [Concomitant]
     Route: 065
     Dates: start: 20110718
  6. ZOCOR [Suspect]
     Route: 048
     Dates: start: 20110901
  7. DOCUSATE SODIUM [Concomitant]
     Route: 065
     Dates: start: 20110718
  8. GABAPENTIN [Concomitant]
     Route: 065
     Dates: start: 20110718
  9. OMEPRAZOLE [Concomitant]
     Route: 065
     Dates: start: 20110718
  10. ZOPICLONE [Concomitant]
     Route: 065
     Dates: start: 20110718
  11. HYPROMELLOSE [Concomitant]
     Route: 065
     Dates: start: 20110718
  12. MEPTAZINOL [Concomitant]
     Route: 065
     Dates: start: 20110815

REACTIONS (1)
  - CONTUSION [None]
